FAERS Safety Report 5303540-6 (Version None)
Quarter: 2007Q2

REPORT INFORMATION
  Report Type: 
  Country: None (occurrence: None)
  Receive Date: 20070420
  Receipt Date: 20070413
  Transmission Date: 20071010
  Serious: Yes (Death)
  Sender: FDA-Public Use
  Company Number: AU-ROXANE LABORATORIES, INC-2007-BP-05142RO

PATIENT
  Age: 21 Year
  Sex: Male

DRUGS (3)
  1. METHADONE HCL [Suspect]
  2. ETHANOL [Suspect]
  3. VOLTATILE SUBSTANCE [Suspect]
     Route: 055

REACTIONS (7)
  - BLOOD ETHANOL [None]
  - CHEMICAL POISONING [None]
  - EXFOLIATIVE RASH [None]
  - LYMPHADENOPATHY [None]
  - PULMONARY CONGESTION [None]
  - PULMONARY OEDEMA [None]
  - THERAPEUTIC AGENT TOXICITY [None]
